FAERS Safety Report 8006859-3 (Version None)
Quarter: 2011Q4

REPORT INFORMATION
  Report Type: 
  Country: None (occurrence: None)
  Receive Date: 20111227
  Receipt Date: 20111221
  Transmission Date: 20120403
  Serious: Yes (Death, Hospitalization)
  Sender: FDA-Public Use
  Company Number: US-JNJFOC-20111209831

PATIENT
  Sex: Female
  Weight: 63.5 kg

DRUGS (6)
  1. LEVAQUIN [Suspect]
     Indication: BRONCHITIS
     Route: 042
     Dates: start: 20090101, end: 20090101
  2. LEVAQUIN [Suspect]
     Indication: BACTERIAL INFECTION
     Route: 042
     Dates: start: 20090101, end: 20090101
  3. LEVAQUIN [Suspect]
     Route: 048
     Dates: start: 20090101, end: 20101201
  4. LEVAQUIN [Suspect]
     Route: 048
     Dates: start: 20090101, end: 20101201
  5. LEVAQUIN [Suspect]
     Indication: PNEUMONIA
     Route: 042
     Dates: start: 20090101, end: 20090101
  6. LEVAQUIN [Suspect]
     Route: 048
     Dates: start: 20090101, end: 20101201

REACTIONS (12)
  - MUSCLE ATROPHY [None]
  - BONE DENSITY DECREASED [None]
  - BLOOD GLUCOSE DECREASED [None]
  - RENAL IMPAIRMENT [None]
  - INFECTION [None]
  - PAIN [None]
  - DIARRHOEA [None]
  - DRUG RESISTANCE [None]
  - CARDIAC DISORDER [None]
  - ABNORMAL LOSS OF WEIGHT [None]
  - EYE DISORDER [None]
  - BLOOD POTASSIUM DECREASED [None]
